FAERS Safety Report 8919022 (Version 2)
Quarter: 2013Q1

REPORT INFORMATION
  Report Type: Spontaneous
  Country: CH (occurrence: CH)
  Receive Date: 20121121
  Receipt Date: 20130228
  Transmission Date: 20140127
  Serious: Yes (Hospitalization)
  Sender: FDA-Public Use
  Company Number: CH-JNJFOC-20121103920

PATIENT
  Age: 49 Year
  Sex: Male

DRUGS (4)
  1. XEPLION [Suspect]
     Indication: SCHIZOPHRENIA
     Route: 030
     Dates: start: 20121025
  2. XEPLION [Suspect]
     Indication: SCHIZOPHRENIA
     Route: 030
  3. XEPLION [Suspect]
     Indication: SCHIZOPHRENIA
     Route: 030
     Dates: start: 20121018
  4. TRUXAL [Concomitant]
     Dosage: 15 MG UP TO 2 TABLETS A DAY
     Route: 065

REACTIONS (4)
  - Dyspnoea [Recovering/Resolving]
  - Somnolence [Recovered/Resolved]
  - Eczema [Recovering/Resolving]
  - Sleep disorder [Recovered/Resolved]
